FAERS Safety Report 15840641 (Version 4)
Quarter: 2020Q2

REPORT INFORMATION
  Report Type: Report from Study
  Country: US (occurrence: US)
  Receive Date: 20190118
  Receipt Date: 20200616
  Transmission Date: 20200713
  Serious: Yes (Other)
  Sender: FDA-Public Use
  Company Number: US-ROCHE-2246679

PATIENT
  Age: 47 Year
  Sex: Female
  Weight: 61.29 kg

DRUGS (6)
  1. LEVOTHYROXINE. [Concomitant]
     Active Substance: LEVOTHYROXINE
     Dosage: 88 MCG
     Route: 048
  2. DALFAMPRIDINE. [Concomitant]
     Active Substance: DALFAMPRIDINE
     Route: 048
     Dates: start: 20200123
  3. AMPYRA [Concomitant]
     Active Substance: DALFAMPRIDINE
     Route: 065
  4. ZYRTEC [Concomitant]
     Active Substance: CETIRIZINE HYDROCHLORIDE
     Route: 048
  5. GABAPENTIN. [Concomitant]
     Active Substance: GABAPENTIN
     Indication: NEURALGIA
     Dosage: 100 MG AT NIGHT?30DAYS FOR TOTAL
     Route: 048
     Dates: start: 20200521
  6. OCREVUS [Suspect]
     Active Substance: OCRELIZUMAB
     Indication: MULTIPLE SCLEROSIS
     Dosage: DATE OF TREATMENT: 25/JAN/2019, 28/JUN/2019, 30/DEC/2019,
     Route: 042
     Dates: start: 20181228

REACTIONS (7)
  - Nasopharyngitis [Recovering/Resolving]
  - Respiratory tract congestion [Recovered/Resolved]
  - Malaise [Unknown]
  - Nasal congestion [Recovering/Resolving]
  - Oropharyngeal pain [Recovered/Resolved]
  - Urinary tract infection [Recovered/Resolved]
  - Upper respiratory tract infection [Recovered/Resolved]

NARRATIVE: CASE EVENT DATE: 201901
